FAERS Safety Report 11418385 (Version 1)
Quarter: 2015Q3

REPORT INFORMATION
  Report Type: Report from Study
  Country: ES (occurrence: ES)
  Receive Date: 20150826
  Receipt Date: 20150826
  Transmission Date: 20151125
  Serious: Yes (Death)
  Sender: FDA-Public Use
  Company Number: ES-ROCHE-1625273

PATIENT
  Age: 74 Year
  Sex: Female
  Weight: 58.4 kg

DRUGS (5)
  1. BEVACIZUMAB [Suspect]
     Active Substance: BEVACIZUMAB
     Indication: COLORECTAL CANCER METASTATIC
     Route: 042
     Dates: start: 20140708, end: 20140708
  2. OXALIPLATIN. [Suspect]
     Active Substance: OXALIPLATIN
     Indication: COLORECTAL CANCER METASTATIC
     Route: 042
     Dates: start: 20140708, end: 20140708
  3. FLUOROURACILE [Suspect]
     Active Substance: FLUOROURACIL
     Indication: COLORECTAL CANCER METASTATIC
     Route: 040
     Dates: start: 20140708, end: 20140708
  4. LEUCOVORIN. [Suspect]
     Active Substance: LEUCOVORIN
     Indication: COLORECTAL CANCER METASTATIC
     Route: 042
     Dates: start: 20140708, end: 20140708
  5. FLUOROURACILE [Suspect]
     Active Substance: FLUOROURACIL
     Route: 042
     Dates: start: 20140708, end: 20140708

REACTIONS (1)
  - Death [Fatal]

NARRATIVE: CASE EVENT DATE: 20140710
